FAERS Safety Report 5946388-1 (Version None)
Quarter: 2008Q4

REPORT INFORMATION
  Report Type: 
  Country: None (occurrence: None)
  Receive Date: 20081106
  Receipt Date: 20081023
  Transmission Date: 20090506
  Serious: Yes (Hospitalization)
  Sender: FDA-Public Use
  Company Number: 2008BM000202

PATIENT
  Age: 18 Year
  Sex: Male
  Weight: 25 kg

DRUGS (2)
  1. NAGLAZYME [Suspect]
     Indication: MUCOPOLYSACCHARIDOSIS VI
     Dosage: 25 MG;QW;IVDRP
     Route: 041
     Dates: start: 20080901, end: 20080924
  2. CETRIRIZINE [Concomitant]

REACTIONS (6)
  - CARDIAC FAILURE [None]
  - CONDITION AGGRAVATED [None]
  - FLUID OVERLOAD [None]
  - LOBAR PNEUMONIA [None]
  - PNEUMONIA BACTERIAL [None]
  - PULMONARY HYPERTENSION [None]
